FAERS Safety Report 21792041 (Version 2)
Quarter: 2023Q1

REPORT INFORMATION
  Report Type: Spontaneous
  Country: US (occurrence: US)
  Receive Date: 20221229
  Receipt Date: 20230323
  Transmission Date: 20230417
  Serious: No
  Sender: FDA-Public Use
  Company Number: US-SA-SAC20221223000108

PATIENT
  Sex: Male

DRUGS (1)
  1. DUPIXENT [Suspect]
     Active Substance: DUPILUMAB
     Dosage: 200 MG, OTHER
     Route: 058

REACTIONS (6)
  - Condition aggravated [Unknown]
  - Product dose omission issue [Unknown]
  - Ocular hyperaemia [Unknown]
  - Rash [Recovered/Resolved]
  - Injection site pain [Unknown]
  - Drug effect less than expected [Unknown]
